FAERS Safety Report 5564938-4 (Version None)
Quarter: 2007Q4

REPORT INFORMATION
  Report Type: 
  Country: None (occurrence: None)
  Receive Date: 20071218
  Receipt Date: 20071212
  Transmission Date: 20080405
  Serious: Yes (Hospitalization)
  Sender: FDA-Public Use
  Company Number: B0406698A

PATIENT
  Age: 30 Year
  Sex: Female

DRUGS (3)
  1. FLOLAN [Suspect]
     Indication: PULMONARY HYPERTENSION
     Route: 042
     Dates: start: 20020903
  2. WARFARIN SODIUM [Suspect]
     Route: 048
     Dates: end: 20030131
  3. PULMICORT [Concomitant]
     Route: 055

REACTIONS (4)
  - ASTHMA [None]
  - HAEMOPTYSIS [None]
  - PULMONARY ALVEOLAR HAEMORRHAGE [None]
  - THYROIDITIS [None]
